FAERS Safety Report 15896569 (Version 2)
Quarter: 2019Q1

REPORT INFORMATION
  Report Type: Spontaneous
  Country: FR (occurrence: FR)
  Receive Date: 20190131
  Receipt Date: 20190314
  Transmission Date: 20190417
  Serious: Yes (Hospitalization, Other)
  Sender: FDA-Public Use
  Company Number: FR-ABBVIE-19K-056-2646420-00

PATIENT
  Sex: Female

DRUGS (5)
  1. DELURSAN [Concomitant]
     Active Substance: URSODIOL
     Indication: PRODUCT USED FOR UNKNOWN INDICATION
     Route: 048
  2. HUMIRA [Suspect]
     Active Substance: ADALIMUMAB
     Indication: CROHN^S DISEASE
     Route: 058
     Dates: start: 200902, end: 201810
  3. BROMAZEPAM [Concomitant]
     Active Substance: BROMAZEPAM
     Indication: PRODUCT USED FOR UNKNOWN INDICATION
     Dosage: 1/4 TABLET
     Route: 048
  4. ESOMEPRAZOLE. [Concomitant]
     Active Substance: ESOMEPRAZOLE MAGNESIUM
     Indication: PRODUCT USED FOR UNKNOWN INDICATION
     Route: 048
  5. PREDNISOLONE. [Concomitant]
     Active Substance: PREDNISOLONE
     Indication: PRODUCT USED FOR UNKNOWN INDICATION
     Route: 048

REACTIONS (17)
  - Cough [Unknown]
  - Rhinorrhoea [Unknown]
  - Eczema [Unknown]
  - Arthralgia [Recovered/Resolved]
  - Sacroiliitis [Unknown]
  - Nausea [Unknown]
  - Ovarian cyst [Unknown]
  - Henoch-Schonlein purpura [Recovering/Resolving]
  - Proteinuria [Unknown]
  - Monoclonal gammopathy [Unknown]
  - Acute kidney injury [Unknown]
  - Asthenia [Unknown]
  - Rib fracture [Unknown]
  - Vasculitis necrotising [Recovering/Resolving]
  - Glomerulonephropathy [Unknown]
  - Purpura [Unknown]
  - Viral infection [Unknown]

NARRATIVE: CASE EVENT DATE: 2018
